FAERS Safety Report 23750847 (Version 2)
Quarter: 2024Q2

REPORT INFORMATION
  Report Type: Spontaneous
  Country: NL (occurrence: NL)
  Receive Date: 20240417
  Receipt Date: 20240429
  Transmission Date: 20240716
  Serious: Yes (Death)
  Sender: FDA-Public Use
  Company Number: NL-AstraZeneca-2020SE80828

PATIENT

DRUGS (4)
  1. GOSERELIN [Suspect]
     Active Substance: GOSERELIN
     Indication: Prostate cancer
     Dosage: 1.00 X PER 3 MONTHS
     Route: 058
     Dates: start: 20191022
  2. GOSERELIN [Suspect]
     Active Substance: GOSERELIN
     Dosage: 1.00 X PER 3 MONTHS
     Route: 058
     Dates: start: 20200127
  3. GOSERELIN [Suspect]
     Active Substance: GOSERELIN
     Dosage: 1.00 X PER 3 MONTHS
     Route: 058
     Dates: start: 20200520
  4. ZOLADEX [Suspect]
     Active Substance: GOSERELIN ACETATE
     Indication: Prostate cancer
     Dosage: UNK
     Route: 065

REACTIONS (1)
  - Sepsis [Fatal]
